FAERS Safety Report 4989449-6 (Version None)
Quarter: 2006Q2

REPORT INFORMATION
  Report Type: 
  Country: None (occurrence: None)
  Receive Date: 20060502
  Receipt Date: 20050823
  Transmission Date: 20061013
  Serious: Yes (Hospitalization)
  Sender: FDA-Public Use
  Company Number: US-MERCK-0508USA03915

PATIENT
  Age: 52 Year
  Sex: Female
  Weight: 114 kg

DRUGS (8)
  1. VIOXX [Suspect]
     Indication: ARTHRALGIA
     Route: 048
     Dates: start: 19991008, end: 20040906
  2. TRAMADOL HYDROCHLORIDE [Concomitant]
     Indication: ARTHRALGIA
     Route: 065
  3. LIPITOR [Concomitant]
     Indication: BLOOD CHOLESTEROL INCREASED
     Route: 065
     Dates: start: 19990930, end: 20030213
  4. MECLIZINE [Concomitant]
     Indication: DIZZINESS
     Route: 065
  5. LOW-OGESTREL-21 [Concomitant]
     Route: 065
  6. PROVIGIL [Concomitant]
     Route: 065
  7. LABETALOL HYDROCHLORIDE [Concomitant]
     Indication: HYPERTENSION
     Route: 065
  8. OXYTROL [Concomitant]
     Indication: POLLAKIURIA
     Route: 065

REACTIONS (18)
  - ANGINA UNSTABLE [None]
  - BLOOD TRIGLYCERIDES INCREASED [None]
  - CATAPLEXY [None]
  - CORONARY ARTERY DISEASE [None]
  - CORONARY ARTERY STENOSIS [None]
  - DEPRESSION [None]
  - DRUG HYPERSENSITIVITY [None]
  - DYSPEPSIA [None]
  - DYSPNOEA [None]
  - GOUT [None]
  - HYPERLIPIDAEMIA [None]
  - HYPERTENSIVE HEART DISEASE [None]
  - INJURY [None]
  - MYOCARDIAL INFARCTION [None]
  - NARCOLEPSY [None]
  - OEDEMA PERIPHERAL [None]
  - SLEEP APNOEA SYNDROME [None]
  - SWELLING [None]
